FAERS Safety Report 5604612-9 (Version None)
Quarter: 2008Q1

REPORT INFORMATION
  Report Type: 
  Country: None (occurrence: None)
  Receive Date: 20080124
  Receipt Date: 20080124
  Transmission Date: 20080703
  Serious: Yes (Hospitalization)
  Sender: FDA-Public Use
  Company Number: None

PATIENT
  Age: 43 Year
  Sex: Male
  Weight: 116.1 kg

DRUGS (1)
  1. DEXAMETHASONE TAB [Suspect]
     Dosage: 4MG  QID  PO
     Route: 048
     Dates: start: 20080103, end: 20080115

REACTIONS (1)
  - HYPERGLYCAEMIA [None]
